FAERS Safety Report 14225396 (Version 1)
Quarter: 2017Q4

REPORT INFORMATION
  Report Type: Spontaneous
  Country: US (occurrence: US)
  Receive Date: 20171127
  Receipt Date: 20171127
  Transmission Date: 20180321
  Serious: No
  Sender: FDA-Public Use
  Company Number: US-PFIZER INC-2017506952

PATIENT
  Age: 37 Year
  Sex: Male

DRUGS (1)
  1. SOMAVERT [Suspect]
     Active Substance: PEGVISOMANT
     Dosage: 20MG INJECTION DAILY
     Dates: start: 201609

REACTIONS (1)
  - Pain [Unknown]

NARRATIVE: CASE EVENT DATE: 201711
